FAERS Safety Report 4358094-8 (Version None)
Quarter: 2004Q2

REPORT INFORMATION
  Report Type: 
  Country: None (occurrence: None)
  Receive Date: 20040511
  Receipt Date: 20040430
  Transmission Date: 20050107
  Serious: Yes (Other)
  Sender: FDA-Public Use
  Company Number: 2004029635

PATIENT
  Age: 63 Year
  Sex: Female

DRUGS (3)
  1. LIPITOR [Suspect]
     Indication: ILL-DEFINED DISORDER
  2. ANASTROZOLE (ANASTROZOLE) [Concomitant]
  3. IMIPRAMINE [Concomitant]

REACTIONS (4)
  - CONTUSION [None]
  - MUSCLE HAEMORRHAGE [None]
  - PAIN [None]
  - POST PROCEDURAL COMPLICATION [None]
